FAERS Safety Report 9908100 (Version 1)
Quarter: 2014Q1

REPORT INFORMATION
  Report Type: Spontaneous
  Country: US (occurrence: None)
  Receive Date: 20140214
  Receipt Date: 20140214
  Transmission Date: 20141002
  Serious: No
  Sender: FDA-Public Use
  Company Number: None

PATIENT
  Sex: 0

DRUGS (2)
  1. SILVADENE [Suspect]
  2. SILVASORB [Suspect]

REACTIONS (3)
  - Medication error [None]
  - Drug dispensing error [None]
  - Wrong drug administered [None]
